FAERS Safety Report 16993718 (Version 6)
Quarter: 2020Q1

REPORT INFORMATION
  Report Type: Report from Study
  Country: US (occurrence: US)
  Receive Date: 20191105
  Receipt Date: 20200226
  Transmission Date: 20200409
  Serious: Yes (Other)
  Sender: FDA-Public Use
  Company Number: US-GLAXOSMITHKLINE-US2019TSO174489

PATIENT
  Age: 82 Year
  Sex: Female
  Weight: 64.85 kg

DRUGS (4)
  1. NIRAPARIB [Suspect]
     Active Substance: NIRAPARIB
     Indication: FALLOPIAN TUBE CANCER
     Dosage: 200 MG, QD
     Route: 048
     Dates: start: 201909, end: 20191029
  2. NIRAPARIB [Suspect]
     Active Substance: NIRAPARIB
     Dosage: 200 MG, QD
  3. NIRAPARIB [Suspect]
     Active Substance: NIRAPARIB
     Dosage: 200MG PM WITH SNACK
     Dates: start: 20191105
  4. NIRAPARIB [Suspect]
     Active Substance: NIRAPARIB
     Dosage: 200MG PM WITH SNACK

REACTIONS (13)
  - Atrial fibrillation [Not Recovered/Not Resolved]
  - Decreased appetite [Recovered/Resolved]
  - Peripheral coldness [Recovered/Resolved]
  - Regurgitation [Unknown]
  - Dyspnoea [Not Recovered/Not Resolved]
  - Lacrimation increased [Unknown]
  - Off label use [Unknown]
  - Vasodilatation [Recovered/Resolved]
  - Weight decreased [Recovered/Resolved]
  - Vomiting [Recovered/Resolved]
  - Platelet count decreased [Unknown]
  - Fatigue [Recovering/Resolving]
  - Palmar erythema [Recovered/Resolved]

NARRATIVE: CASE EVENT DATE: 20190925
